FAERS Safety Report 12450466 (Version 2)
Quarter: 2016Q2

REPORT INFORMATION
  Report Type: Spontaneous
  Country: JP (occurrence: JP)
  Receive Date: 20160609
  Receipt Date: 20160623
  Transmission Date: 20160815
  Serious: Yes (Hospitalization)
  Sender: FDA-Public Use
  Company Number: PHHY2014JP179685

PATIENT
  Age: 78 Year
  Sex: Male

DRUGS (6)
  1. REVOLADE [Suspect]
     Active Substance: ELTROMBOPAG
     Dosage: 37.5 MG, QD
     Route: 048
  2. REVOLADE [Suspect]
     Active Substance: ELTROMBOPAG
     Indication: IMMUNE THROMBOCYTOPENIC PURPURA
     Dosage: 12.5 MG, QD
     Route: 048
     Dates: start: 20140206
  3. REVOLADE [Suspect]
     Active Substance: ELTROMBOPAG
     Dosage: 50 MG, UNK
     Route: 048
     Dates: start: 201407, end: 20141029
  4. REVOLADE [Suspect]
     Active Substance: ELTROMBOPAG
     Dosage: UNK
     Route: 065
     Dates: end: 201411
  5. PREDNISOLONE. [Concomitant]
     Active Substance: PREDNISOLONE
     Indication: IMMUNE THROMBOCYTOPENIC PURPURA
     Dosage: 5-15 MG, UNK
     Route: 065
     Dates: start: 200811, end: 200902
  6. PREDNISOLONE. [Concomitant]
     Active Substance: PREDNISOLONE
     Dosage: 5-15 MG, UNK
     Route: 065
     Dates: start: 201202, end: 201410

REACTIONS (7)
  - Platelet count decreased [Unknown]
  - Anaemia [Unknown]
  - Fibrosis [Unknown]
  - Myelofibrosis [Unknown]
  - Red blood cell morphology abnormal [Unknown]
  - Haemoglobin decreased [Unknown]
  - Nucleated red cells [Unknown]

NARRATIVE: CASE EVENT DATE: 201410
